FAERS Safety Report 4598840-1 (Version None)
Quarter: 2005Q1

REPORT INFORMATION
  Report Type: 
  Country: None (occurrence: None)
  Receive Date: 20050304
  Receipt Date: 20050216
  Transmission Date: 20050727
  Serious: Yes (Other)
  Sender: FDA-Public Use
  Company Number: US-JNJFOC-20050205051

PATIENT
  Age: 5 Decade
  Sex: Male

DRUGS (1)
  1. REMICADE [Suspect]
     Indication: CROHN'S DISEASE
     Dosage: RECEIVED 6 INFUSIONS BEFORE THE EVENT
     Route: 042

REACTIONS (1)
  - ASPERGILLOSIS [None]
